FAERS Safety Report 18470774 (Version 2)
Quarter: 2020Q4

REPORT INFORMATION
  Report Type: Other
  Country: US (occurrence: US)
  Receive Date: 20201105
  Receipt Date: 20201218
  Transmission Date: 20210114
  Serious: Yes (Hospitalization, Other)
  Sender: FDA-Public Use
  Company Number: US-ROCHE-2204392

PATIENT
  Age: 64 Year
  Sex: Female
  Weight: 54.48 kg

DRUGS (5)
  1. OCREVUS [Suspect]
     Active Substance: OCRELIZUMAB
     Indication: SECONDARY PROGRESSIVE MULTIPLE SCLEROSIS
     Dosage: CYCLE 3
     Route: 065
     Dates: start: 20181011
  2. OCREVUS [Suspect]
     Active Substance: OCRELIZUMAB
     Route: 065
     Dates: start: 20190422
  3. OCREVUS [Suspect]
     Active Substance: OCRELIZUMAB
     Route: 042
     Dates: start: 20180329
  4. OCREVUS [Suspect]
     Active Substance: OCRELIZUMAB
     Indication: PRIMARY PROGRESSIVE MULTIPLE SCLEROSIS
     Route: 065
     Dates: start: 2017
  5. OCREVUS [Suspect]
     Active Substance: OCRELIZUMAB
     Route: 042

REACTIONS (15)
  - Spinal disorder [Unknown]
  - Osteoporosis [Recovered/Resolved]
  - Osteoarthritis [Not Recovered/Not Resolved]
  - Internal haemorrhage [Recovered/Resolved]
  - Alopecia [Not Recovered/Not Resolved]
  - Clostridium difficile infection [Recovered/Resolved]
  - Iliac artery rupture [Recovered/Resolved]
  - Tinnitus [Not Recovered/Not Resolved]
  - Scoliosis [Recovering/Resolving]
  - Memory impairment [Unknown]
  - Fall [Unknown]
  - Parkinson^s disease [Unknown]
  - Multiple sclerosis relapse [Recovered/Resolved]
  - Posture abnormal [Not Recovered/Not Resolved]
  - Tremor [Recovered/Resolved]

NARRATIVE: CASE EVENT DATE: 2019
